FAERS Safety Report 9967811 (Version 1)
Quarter: 2014Q1

REPORT INFORMATION
  Report Type: Report from Study
  Country: US (occurrence: US)
  Receive Date: 20140306
  Receipt Date: 20140306
  Transmission Date: 20141002
  Serious: No
  Sender: FDA-Public Use
  Company Number: US-ABBVIE-13P-163-1147438-00

PATIENT
  Age: 58 Year
  Sex: Female
  Weight: 83.99 kg

DRUGS (18)
  1. HUMIRA [Suspect]
     Indication: RHEUMATOID ARTHRITIS
     Dates: start: 201211, end: 201301
  2. SULFASALAZINE [Suspect]
     Indication: RHEUMATOID ARTHRITIS
     Dates: start: 2013
  3. METHOTREXATE [Concomitant]
     Indication: RHEUMATOID ARTHRITIS
  4. LANTUS [Concomitant]
     Indication: DIABETES MELLITUS
  5. NOVOLOG [Concomitant]
     Indication: DIABETES MELLITUS
  6. UNKNOWN MEDICATION [Concomitant]
     Indication: DIABETES MELLITUS
  7. OXYCODONE [Concomitant]
     Indication: BACK DISORDER
  8. TOPAMAX [Concomitant]
     Indication: MIGRAINE PROPHYLAXIS
  9. RISPERDAL [Concomitant]
     Indication: INSOMNIA
  10. EQALLERGY [Concomitant]
     Indication: INSOMNIA
  11. CRESTOR [Concomitant]
     Indication: BLOOD CHOLESTEROL
  12. OMEPRAZOLE [Concomitant]
     Indication: GASTROOESOPHAGEAL REFLUX DISEASE
  13. CYMBALTA [Concomitant]
     Indication: DEPRESSION
  14. METFORMIN [Concomitant]
     Indication: DIABETES MELLITUS
  15. GABAPENTIN [Concomitant]
     Indication: PAIN
  16. LOSARTIN [Concomitant]
     Indication: BLOOD PRESSURE MANAGEMENT
  17. SUMATRIPTAN [Concomitant]
     Indication: MIGRAINE
  18. FOLIC ACID [Concomitant]
     Indication: VITAMIN SUPPLEMENTATION

REACTIONS (5)
  - Decreased appetite [Not Recovered/Not Resolved]
  - Weight decreased [Not Recovered/Not Resolved]
  - Vomiting [Recovered/Resolved]
  - Diarrhoea [Not Recovered/Not Resolved]
  - Urinary tract infection [Recovered/Resolved]
